FAERS Safety Report 7973319-5 (Version None)
Quarter: 2011Q4

REPORT INFORMATION
  Report Type: 
  Country: None (occurrence: None)
  Receive Date: 20111213
  Receipt Date: 20110517
  Transmission Date: 20120403
  Serious: Yes (Other)
  Sender: FDA-Public Use
  Company Number: US-AMGEN-USASP2011023142

PATIENT
  Age: 49 Year
  Sex: Female

DRUGS (9)
  1. CALCIUM [Concomitant]
     Dosage: UNK
  2. VITAMIN B12                        /00056201/ [Concomitant]
     Dosage: UNK
  3. REPLIVA [Concomitant]
     Dosage: UNK
  4. DIOVAN [Concomitant]
     Dosage: 1 MG, UNK
  5. HYDROCHLOROTHIAZIDE [Concomitant]
     Dosage: 1 MG, UNK
  6. PRILOSEC [Concomitant]
     Dosage: 1 MG, UNK
  7. VITAMIN D [Concomitant]
  8. ARANESP [Suspect]
     Indication: ANAEMIA
     Dosage: UNK
     Dates: start: 20090101, end: 20101201
  9. SULINDAC [Concomitant]
     Dosage: 1 MG, UNK

REACTIONS (4)
  - RED BLOOD CELL COUNT DECREASED [None]
  - HAEMOGLOBIN DECREASED [None]
  - FATIGUE [None]
  - ASTHENIA [None]
